FAERS Safety Report 4367734-9 (Version None)
Quarter: 2004Q2

REPORT INFORMATION
  Report Type: 
  Country: None (occurrence: None)
  Receive Date: 20040527
  Receipt Date: 20040311
  Transmission Date: 20050107
  Serious: Yes (Hospitalization)
  Sender: FDA-Public Use
  Company Number: 361644

PATIENT
  Age: 50 Year
  Sex: Male

DRUGS (2)
  1. LARIAM [Suspect]
     Indication: MALARIA PROPHYLAXIS
     Dosage: 250 MG ORAL
     Route: 048
     Dates: start: 20021115, end: 20031115
  2. MALARONE [Suspect]
     Indication: MALARIA PROPHYLAXIS
     Dosage: ORAL
     Route: 048
     Dates: start: 20031215

REACTIONS (1)
  - REACTIVE PSYCHOSIS [None]
